FAERS Safety Report 6850970-7 (Version None)
Quarter: 2010Q3

REPORT INFORMATION
  Report Type: 
  Country: None (occurrence: None)
  Receive Date: 20100716
  Receipt Date: 20071023
  Transmission Date: 20110219
  Serious: No
  Sender: FDA-Public Use
  Company Number: US-PFIZER INC-2007090919

PATIENT
  Sex: Female
  Weight: 68.181 kg

DRUGS (13)
  1. CHANTIX [Suspect]
     Indication: SMOKING CESSATION THERAPY
     Dates: start: 20070909
  2. LASIX [Concomitant]
  3. ACETYLSALICYLIC ACID [Concomitant]
  4. POTASSIUM CHLORIDE [Concomitant]
  5. TOPROL-XL [Concomitant]
  6. TRICOR [Concomitant]
  7. LOPID [Concomitant]
  8. QUINAPRIL [Concomitant]
  9. PROZAC [Concomitant]
  10. CRESTOR [Concomitant]
  11. NIACIN [Concomitant]
  12. METFORMIN HCL [Concomitant]
  13. INSULIN LISPRO [Concomitant]

REACTIONS (2)
  - GASTRIC DISORDER [None]
  - VOMITING [None]
